FAERS Safety Report 5023137-5 (Version None)
Quarter: 2006Q2

REPORT INFORMATION
  Report Type: 
  Country: None (occurrence: None)
  Receive Date: 20060605
  Receipt Date: 20060516
  Transmission Date: 20061013
  Serious: Yes (Life-Threatening, Hospitalization)
  Sender: FDA-Public Use
  Company Number: B0425055A

PATIENT
  Age: 52 Year
  Sex: Female

DRUGS (5)
  1. MELPHALAN (MELPHALAN) [Suspect]
     Indication: CHEMOTHERAPY
  2. HERCEPTIN [Suspect]
     Indication: CHEMOTHERAPY
  3. DOCETAXEL (DOCETAXEL) [Suspect]
     Indication: CHEMOTHERAPY
  4. CARBOPLATIN [Suspect]
     Indication: CHEMOTHERAPY
  5. ANTHRACYCLINES [Concomitant]

REACTIONS (5)
  - COLITIS [None]
  - DEPRESSED LEVEL OF CONSCIOUSNESS [None]
  - DRUG TOXICITY [None]
  - HYPERAMMONAEMIA [None]
  - MULTI-ORGAN FAILURE [None]
